FAERS Safety Report 8089575-1 (Version None)
Quarter: 2012Q1

REPORT INFORMATION
  Report Type: 
  Country: None (occurrence: None)
  Receive Date: 20120128
  Receipt Date: 20110620
  Transmission Date: 20120608
  Serious: No
  Sender: FDA-Public Use
  Company Number: US-ABBOTT-11P-163-0733599-00

PATIENT
  Age: 52 Year
  Sex: Male

DRUGS (4)
  1. HUMIRA [Suspect]
     Indication: RHEUMATOID ARTHRITIS
     Dates: start: 20110515
  2. ULTRAM [Concomitant]
     Indication: PAIN
     Dosage: 50 MG PRN
  3. ARAVA [Concomitant]
     Indication: RHEUMATOID ARTHRITIS
  4. MOBIC [Concomitant]
     Indication: RHEUMATOID ARTHRITIS

REACTIONS (2)
  - NASOPHARYNGITIS [None]
  - SINUS CONGESTION [None]
